FAERS Safety Report 5383869-6 (Version None)
Quarter: 2007Q3

REPORT INFORMATION
  Report Type: 
  Country: None (occurrence: None)
  Receive Date: 20070711
  Receipt Date: 20070702
  Transmission Date: 20080115
  Serious: Yes (Hospitalization)
  Sender: FDA-Public Use
  Company Number: US-JNJFOC-20070700756

PATIENT
  Sex: Male
  Weight: 58.97 kg

DRUGS (6)
  1. DURAGESIC-100 [Suspect]
     Indication: PAIN
     Route: 062
  2. FENTANYL TRANSDERMAL SYSTEM [Suspect]
     Indication: PAIN
     Route: 062
  3. PERCOCET [Concomitant]
     Indication: BREAKTHROUGH PAIN
     Dosage: 5-325MG
     Route: 048
  4. LEXAPRO [Concomitant]
     Indication: ANXIETY
     Route: 048
  5. KLONOPIN [Concomitant]
     Indication: ANXIETY
     Route: 048
  6. DIAZEPAM [Concomitant]
     Indication: MUSCLE DISORDER
     Route: 048

REACTIONS (5)
  - FEELING ABNORMAL [None]
  - OXYGEN SATURATION DECREASED [None]
  - PHARMACEUTICAL PRODUCT COMPLAINT [None]
  - RESPIRATORY RATE DECREASED [None]
  - WRONG TECHNIQUE IN DRUG USAGE PROCESS [None]
